FAERS Safety Report 23125049 (Version 1)
Quarter: 2023Q4

REPORT INFORMATION
  Report Type: Spontaneous
  Country: US (occurrence: None)
  Receive Date: 20231030
  Receipt Date: 20231030
  Transmission Date: 20240109
  Serious: No
  Sender: FDA-Public Use
  Company Number: None

PATIENT
  Age: 63 Year
  Sex: Female
  Weight: 63.5 kg

DRUGS (5)
  1. CVS LONG LASTING LUBRICANT EYE [Suspect]
     Active Substance: POLYETHYLENE GLYCOL 400\PROPYLENE GLYCOL
     Dosage: OTHER QUANTITY : EYE DROPS ;?FREQUENCY : AS NEEDED;?OTHER ROUTE : INTO THE EYE ;?
     Route: 050
     Dates: start: 20230101, end: 20231028
  2. VITAMIN  D [Concomitant]
  3. HERBALS\TURMERIC [Concomitant]
     Active Substance: HERBALS\TURMERIC
  4. VITAMIN C [Concomitant]
     Active Substance: ASCORBIC ACID
  5. PROBIOTICS NOS [Concomitant]
     Active Substance: PROBIOTICS NOS

REACTIONS (1)
  - Metamorphopsia [None]

NARRATIVE: CASE EVENT DATE: 20231028
